FAERS Safety Report 8792114 (Version 1)
Quarter: 2012Q4

REPORT INFORMATION
  Report Type: 
  Country: AU (occurrence: AU)
  Receive Date: 20120918
  Receipt Date: 20120918
  Transmission Date: 20130627
  Serious: Yes (Hospitalization)
  Sender: FDA-Public Use
  Company Number: AU-MYLANLABS-2012S1018744

PATIENT
  Age: 69 Year
  Sex: Female

DRUGS (9)
  1. AZATHIOPRINE [Suspect]
     Indication: MICROSCOPIC POLYANGIITIS
     Dosage: 75 mg/day
     Route: 065
  2. PREDNISOLONE [Concomitant]
     Indication: MICROSCOPIC POLYANGIITIS
     Route: 065
  3. PERINDOPRIL [Concomitant]
     Route: 065
  4. PANTOPRAZOLE [Concomitant]
     Route: 065
  5. RISEDRONIC ACID [Concomitant]
     Route: 065
  6. ERYTHROPOIETIN [Concomitant]
     Route: 065
  7. VITAMIN D [Concomitant]
     Route: 065
  8. WARFARIN [Concomitant]
     Indication: DEEP VEIN THROMBOSIS
     Route: 065
  9. CALCIUM [Concomitant]
     Route: 065

REACTIONS (8)
  - Drug hypersensitivity [Recovered/Resolved]
  - Cardiogenic shock [Recovered/Resolved]
  - Acute febrile neutrophilic dermatosis [Recovered/Resolved]
  - Sinus tachycardia [Recovered/Resolved]
  - Renal failure acute [Recovered/Resolved]
  - Multi-organ failure [Recovered/Resolved]
  - Systolic dysfunction [Recovered/Resolved]
  - Coagulation test abnormal [Recovered/Resolved]
